FAERS Safety Report 6093681-0 (Version None)
Quarter: 2009Q1

REPORT INFORMATION
  Report Type: 
  Country: None (occurrence: None)
  Receive Date: 20090226
  Receipt Date: 20090218
  Transmission Date: 20090719
  Serious: Yes (Other)
  Sender: FDA-Public Use
  Company Number: US-JNJCH-2009004734

PATIENT
  Age: 87 Year
  Sex: Female
  Weight: 49.9 kg

DRUGS (6)
  1. BENADRYL [Suspect]
     Indication: URTICARIA
     Dosage: TEXT:2 TABLETS ONCE
     Route: 048
  2. LOTRIMIN [Concomitant]
     Indication: HYPERTENSION
     Route: 048
  3. ASPIRIN [Concomitant]
     Indication: PROPHYLAXIS
     Route: 048
  4. MULTI-VITAMINS [Concomitant]
     Indication: VITAMIN SUPPLEMENTATION
     Dosage: TEXT:ONE CAPLET DAILY
     Route: 048
  5. EXTRA STRENGTH TYLENOL [Concomitant]
     Indication: DRUG USE FOR UNKNOWN INDICATION
     Dosage: TEXT:UNSPECIFIED
     Route: 048
  6. EXTRA STRENGTH TYLENOL [Concomitant]
     Dosage: TEXT:UNSPECIFIED
     Route: 048

REACTIONS (1)
  - MENTAL STATUS CHANGES [None]
